FAERS Safety Report 17489286 (Version 1)
Quarter: 2020Q1

REPORT INFORMATION
  Report Type: Spontaneous
  Country: US (occurrence: US)
  Receive Date: 20200303
  Receipt Date: 20200303
  Transmission Date: 20200409
  Serious: No
  Sender: FDA-Public Use
  Company Number: None

PATIENT
  Age: 57 Year
  Sex: Female
  Weight: 85.5 kg

DRUGS (1)
  1. GABAPENTIN 300 MG CAPSULE [Suspect]
     Active Substance: GABAPENTIN
     Indication: PAIN
     Dosage: ?          QUANTITY:3 CAPSULE(S);?
     Route: 048
     Dates: start: 20200202

REACTIONS (7)
  - Tachycardia [None]
  - Product substitution issue [None]
  - Treatment failure [None]
  - Multiple organ dysfunction syndrome [None]
  - Tinnitus [None]
  - Dyspnoea [None]
  - Therapeutic product effect decreased [None]

NARRATIVE: CASE EVENT DATE: 20200203
